FAERS Safety Report 10745317 (Version 1)
Quarter: 2015Q1

REPORT INFORMATION
  Report Type: Spontaneous
  Country: US (occurrence: None)
  Receive Date: 20150112
  Receipt Date: 20150112
  Transmission Date: 20150721
  Serious: Yes (Other)
  Sender: FDA-Public Use
  Company Number: 1325246

PATIENT
  Age: 28 Year
  Sex: Male

DRUGS (1)
  1. ALTEPLASE (ALTEPLASE) [Suspect]
     Active Substance: ALTEPLASE
     Indication: ISCHAEMIC STROKE
     Dosage: (NOT OTHERWISE SPECIFIED)
     Route: 042

REACTIONS (3)
  - Haemorrhagic transformation stroke [None]
  - Basal ganglia haemorrhage [None]
  - Cerebral haemorrhage [None]
